FAERS Safety Report 10399705 (Version 2)
Quarter: 2014Q4

REPORT INFORMATION
  Report Type: Spontaneous
  Country: BR (occurrence: BR)
  Receive Date: 20140821
  Receipt Date: 20141105
  Transmission Date: 20150528
  Serious: Yes (Death, Hospitalization)
  Sender: FDA-Public Use
  Company Number: BR-BRISTOL-MYERS SQUIBB COMPANY-21309133

PATIENT
  Age: 67 Year
  Sex: Female

DRUGS (3)
  1. METFORMIN HCL [Suspect]
     Active Substance: METFORMIN HYDROCHLORIDE
     Indication: DIABETES MELLITUS
     Dosage: INTERRUPRED IN AUG-2014 AND RESTARTED ON 07AUG14
     Route: 048
     Dates: start: 201408
  2. INSULIN [Concomitant]
     Active Substance: INSULIN NOS
     Indication: DIABETES MELLITUS
     Route: 058
  3. FORXIGA [Suspect]
     Active Substance: DAPAGLIFLOZIN
     Indication: DIABETES MELLITUS
     Dosage: INTERRUPRED IN AUG-2014 AND RESTARTED ON 07AUG14
     Route: 048
     Dates: start: 201408

REACTIONS (10)
  - Metastases to lung [Fatal]
  - Metastases to bone [Fatal]
  - Seizure [Recovered/Resolved]
  - Blood creatinine abnormal [Recovered/Resolved]
  - Respiratory disorder [Not Recovered/Not Resolved]
  - Off label use [Unknown]
  - Blood glucose fluctuation [Not Recovered/Not Resolved]
  - Blood urea abnormal [Recovered/Resolved]
  - Diabetic ketoacidosis [Unknown]
  - Urosepsis [Not Recovered/Not Resolved]

NARRATIVE: CASE EVENT DATE: 2014
